FAERS Safety Report 15661692 (Version 2)
Quarter: 2019Q2

REPORT INFORMATION
  Report Type: Spontaneous
  Country: JP (occurrence: JP)
  Receive Date: 20181127
  Receipt Date: 20190426
  Transmission Date: 20190711
  Serious: Yes (Hospitalization)
  Sender: FDA-Public Use
  Company Number: JP-PFIZER INC-2012SE96401

PATIENT
  Age: 87 Year
  Sex: Male
  Weight: 54.4 kg

DRUGS (20)
  1. ALBUMIN [Concomitant]
     Active Substance: ALBUMIN HUMAN
     Indication: HYPOALBUMINAEMIA
     Dosage: 12.5 G, 1X/DAY
     Route: 042
     Dates: start: 20121213, end: 20121219
  2. CARDENALIN [Concomitant]
     Active Substance: DOXAZOSIN MESYLATE
     Indication: HYPERTENSION
     Dosage: 8 MG, 1X/DAY
     Route: 048
     Dates: start: 20121204
  3. FEBURIC [Concomitant]
     Active Substance: FEBUXOSTAT
     Indication: HYPERURICAEMIA
     Dosage: 20 MG, 1X/DAY
     Route: 048
     Dates: start: 20121208
  4. CONCENTRATED HUMAN BLOOD PLATELET [Concomitant]
     Dosage: 2 IU, 1X/DAY
     Dates: start: 20121219, end: 20121219
  5. THYRADIN S [Concomitant]
     Active Substance: LEVOTHYROXINE SODIUM
     Indication: HYPOTHYROIDISM
     Dosage: 50 UG, 1X/DAY
     Route: 048
     Dates: start: 20121110
  6. KENKETU GLOVENIN-I [Concomitant]
     Active Substance: HUMAN IMMUNOGLOBULIN G
     Indication: INFECTION
     Dosage: 5 G, 1X/DAY
     Route: 042
     Dates: start: 20121213, end: 20121215
  7. MEROPENEM. [Suspect]
     Active Substance: MEROPENEM
     Dosage: 4 G, DAILY
     Route: 041
  8. FERROMIA [Concomitant]
     Active Substance: SODIUM FERROUS CITRATE
     Indication: IRON DEFICIENCY ANAEMIA
     Dosage: 50 MG, 1X/DAY
     Route: 048
     Dates: start: 20121210
  9. BENET [Concomitant]
     Active Substance: RISEDRONATE SODIUM
     Indication: OSTEOPOROSIS
     Dosage: 17.5 MG, 1X/DAY
     Route: 048
     Dates: start: 20121129
  10. MEROPENEM. [Suspect]
     Active Substance: MEROPENEM
     Indication: PNEUMONIA
     Dosage: 1 G, DAILY
     Route: 041
     Dates: start: 20121213, end: 20121217
  11. COVERSYL /00790702/ [Concomitant]
     Active Substance: PERINDOPRIL
     Indication: HYPERTENSION
     Dosage: 8 MG, 1X/DAY
     Route: 048
     Dates: start: 20121208
  12. CONIEL [Concomitant]
     Active Substance: BENIDIPINE HYDROCHLORIDE
     Indication: HYPERTENSION
     Dosage: 8 MG, 1X/DAY
     Route: 048
     Dates: start: 20121124
  13. ARTIST [Concomitant]
     Active Substance: CARVEDILOL
     Indication: HYPERTENSION
     Dosage: 20 MG, 1X/DAY
     Route: 048
     Dates: start: 20121201
  14. PERSANTINE [Concomitant]
     Active Substance: DIPYRIDAMOLE
     Indication: PROTEINURIA
     Dosage: 300 MG, 1X/DAY
     Route: 048
     Dates: start: 20121201
  15. BIOFERMIN R [Concomitant]
     Active Substance: DIETARY SUPPLEMENT\PROBIOTICS
     Indication: DIARRHOEA
     Dosage: 18 MG, 1X/DAY
     Route: 048
     Dates: start: 20121108
  16. TARGOCID [Suspect]
     Active Substance: TEICOPLANIN
     Indication: PNEUMONIA
     Dosage: 400 MG, DAILY
     Route: 041
     Dates: start: 20121213, end: 20121217
  17. LENDORMIN D [Concomitant]
     Active Substance: BROTIZOLAM
     Indication: INSOMNIA
     Dosage: 0.25 MG, 1X/DAY
     Route: 048
     Dates: start: 20121109
  18. AMBISOME [Suspect]
     Active Substance: AMPHOTERICIN B
     Indication: CANDIDA INFECTION
     Dosage: 100 MG, DAILY
     Route: 041
     Dates: start: 20121211, end: 20121217
  19. LASIX [Concomitant]
     Active Substance: FUROSEMIDE
     Indication: CARDIAC FAILURE
     Dosage: 20 MG, 1X/DAY
     Route: 048
     Dates: start: 20121116
  20. CONCENTRATED HUMAN BLOOD PLATELET [Concomitant]
     Dosage: 2 IU, 1X/DAY
     Dates: start: 20121107, end: 20121107

REACTIONS (4)
  - Hepatic function abnormal [Recovered/Resolved]
  - Drug eruption [Recovered/Resolved]
  - Platelet count decreased [Recovered/Resolved]
  - Granulocyte count decreased [Recovered/Resolved]

NARRATIVE: CASE EVENT DATE: 20121213
